FAERS Safety Report 4643930-8 (Version None)
Quarter: 2005Q2

REPORT INFORMATION
  Report Type: 
  Country: None (occurrence: None)
  Receive Date: 20050425
  Receipt Date: 20050321
  Transmission Date: 20051028
  Serious: Yes (Other)
  Sender: FDA-Public Use
  Company Number: US-MERCK-0503USA03671

PATIENT
  Age: 36 Year
  Sex: Male
  Weight: 70 kg

DRUGS (2)
  1. VYTORIN [Suspect]
     Indication: BLOOD CHOLESTEROL INCREASED
     Route: 048
     Dates: start: 20050124, end: 20050315
  2. VYTORIN [Suspect]
     Indication: LIPIDS INCREASED
     Route: 048
     Dates: start: 20050124, end: 20050315

REACTIONS (1)
  - HEPATITIS C [None]
